FAERS Safety Report 4680843-X (Version None)
Quarter: 2005Q2

REPORT INFORMATION
  Report Type: 
  Country: None (occurrence: None)
  Receive Date: 20050603
  Receipt Date: 20050425
  Transmission Date: 20051028
  Serious: Yes (Life-Threatening)
  Sender: FDA-Public Use
  Company Number: JP-BRISTOL-MYERS SQUIBB COMPANY-12947446

PATIENT
  Age: 67 Year
  Sex: Female

DRUGS (10)
  1. PARAPLATIN [Suspect]
     Indication: ADENOID CYSTIC CARCINOMA
     Route: 041
     Dates: start: 20040213, end: 20040213
  2. PARAPLATIN [Suspect]
     Route: 041
     Dates: start: 19980702, end: 19981206
  3. ENDOXAN [Suspect]
     Indication: ADENOID CYSTIC CARCINOMA
     Route: 041
     Dates: start: 20040213, end: 20040213
  4. THERARUBICIN [Suspect]
     Indication: ADENOID CYSTIC CARCINOMA
     Route: 041
     Dates: start: 20040213, end: 20040213
  5. THERARUBICIN [Suspect]
     Route: 041
     Dates: start: 19980331, end: 19980404
  6. TAXOL [Concomitant]
     Route: 041
     Dates: start: 20000312, end: 20000312
  7. ADRIACIN [Concomitant]
     Route: 041
     Dates: start: 19980702, end: 19981206
  8. AQUPLA [Concomitant]
     Route: 041
     Dates: start: 20011201, end: 20031202
  9. TAXOTERE [Concomitant]
     Route: 041
     Dates: start: 20000520, end: 20010518
  10. TAXOTERE [Concomitant]
     Route: 041
     Dates: start: 20011201, end: 20031202

REACTIONS (1)
  - MYELODYSPLASTIC SYNDROME [None]
